FAERS Safety Report 11441553 (Version 2)
Quarter: 2015Q4

REPORT INFORMATION
  Report Type: Report from Study
  Country: DE (occurrence: DE)
  Receive Date: 20150901
  Receipt Date: 20151019
  Transmission Date: 20160304
  Serious: Yes (Hospitalization)
  Sender: FDA-Public Use
  Company Number: DE-BEH-2015053422

PATIENT
  Age: 48 Year
  Sex: Female
  Weight: 50 kg

DRUGS (4)
  1. PRIVIGEN [Suspect]
     Active Substance: HUMAN IMMUNOGLOBULIN G
     Indication: LYMPHOMA
     Dosage: INFUSION RATE: MIN. 0.55 - MAX. 1.66 ML/MIN
     Route: 042
     Dates: start: 20150610, end: 20150610
  2. PRIVIGEN [Suspect]
     Active Substance: HUMAN IMMUNOGLOBULIN G
     Indication: HUMORAL IMMUNE DEFECT
     Dosage: INFUSION RATE: MIN. 0.55 - MAX. 1.66 ML/MIN
     Route: 042
     Dates: start: 20150708, end: 20150708
  3. BENDAMUSTIN [Concomitant]
     Active Substance: BENDAMUSTINE
     Dates: start: 20150603
  4. RITUXIMAB [Concomitant]
     Active Substance: RITUXIMAB

REACTIONS (5)
  - Headache [Recovering/Resolving]
  - Pyrexia [Recovered/Resolved]
  - Meningitis aseptic [Recovered/Resolved]
  - Diarrhoea [Unknown]
  - Pyrexia [Recovered/Resolved]

NARRATIVE: CASE EVENT DATE: 201506
